FAERS Safety Report 9827227 (Version 1)
Quarter: 2014Q1

REPORT INFORMATION
  Report Type: Spontaneous
  Country: US (occurrence: US)
  Receive Date: 20140117
  Receipt Date: 20140117
  Transmission Date: 20141002
  Serious: No
  Sender: FDA-Public Use
  Company Number: US-BRISTOL-MYERS SQUIBB COMPANY-19546522

PATIENT
  Age: 71 Year
  Sex: Male

DRUGS (1)
  1. YERVOY [Suspect]
     Indication: METASTATIC MALIGNANT MELANOMA
     Dosage: LAST DOSE ON 05JUL13
     Route: 042
     Dates: start: 20130503, end: 20130705

REACTIONS (2)
  - Diarrhoea [Recovered/Resolved]
  - Rash [Recovered/Resolved]
